FAERS Safety Report 5945591-4 (Version None)
Quarter: 2008Q4

REPORT INFORMATION
  Report Type: 
  Country: None (occurrence: None)
  Receive Date: 20081105
  Receipt Date: 20081022
  Transmission Date: 20090506
  Serious: Yes (Life-Threatening, Hospitalization)
  Sender: FDA-Public Use
  Company Number: FLUO20080011

PATIENT
  Age: 65 Year
  Sex: Female

DRUGS (6)
  1. FLUOROURACIL [Suspect]
     Indication: COLON CANCER
     Dosage: 1500 MG/M2, 4 IN 5 WK, INTRAVENOUS
     Route: 042
     Dates: start: 20080702, end: 20081001
  2. CETUXIMAB [Suspect]
     Indication: COLON CANCER
     Dosage: 250 MG/M2, 1 IN 1 WK, INTRAVENOUS
     Route: 042
     Dates: start: 20080702, end: 20081001
  3. OXALIPLATIN [Suspect]
     Indication: COLON CANCER
     Dosage: 70 MG/M2, 2 IN 5 WK, INTRAVENOUS
     Route: 042
     Dates: start: 20080702, end: 20081001
  4. IRINOTECAN HYDROCHLORIDE [Suspect]
     Indication: COLON CANCER
     Dosage: 100 MG/M2, 2 IN 5 WK, INTRAVENOUS
     Route: 042
     Dates: start: 20080709, end: 20080924
  5. LEUCOVORIN CALCIUM [Suspect]
     Indication: COLON CANCER
     Dosage: 30 MG, 4 IN 5 WK, INTRAVENOUS
     Route: 042
     Dates: start: 20080702, end: 20081001
  6. BEVACIZUMAB [Suspect]
     Indication: COLON CANCER
     Dosage: 7.5 MG/KG, 2 IN 5 WK, INTRAVENOUS
     Route: 042
     Dates: start: 20080702, end: 20080917

REACTIONS (3)
  - DEHYDRATION [None]
  - DIARRHOEA [None]
  - HYPOVOLAEMIC SHOCK [None]
